FAERS Safety Report 4745449-2 (Version None)
Quarter: 2005Q3

REPORT INFORMATION
  Report Type: 
  Country: None (occurrence: None)
  Receive Date: 20050812
  Receipt Date: 20050330
  Transmission Date: 20060218
  Serious: Yes (Other)
  Sender: FDA-Public Use
  Company Number: PHEH2005US03763

PATIENT
  Age: 64 Year
  Sex: Female

DRUGS (1)
  1. VISUDYNE [Suspect]
     Indication: RETINAL NEOVASCULARISATION
     Dates: start: 20050101, end: 20050101

REACTIONS (1)
  - VISUAL ACUITY REDUCED [None]
